FAERS Safety Report 5657168-9 (Version None)
Quarter: 2008Q1

REPORT INFORMATION
  Report Type: 
  Country: None (occurrence: None)
  Receive Date: 20080310
  Receipt Date: 20080226
  Transmission Date: 20080703
  Serious: Yes (Hospitalization, Other)
  Sender: FDA-Public Use
  Company Number: US-MERCK-0711USA00536

PATIENT
  Age: 54 Year
  Sex: Female

DRUGS (5)
  1. FOSAMAX [Suspect]
     Indication: OSTEOPOROSIS
     Route: 048
     Dates: start: 20021113, end: 20051122
  2. FOSAMAX [Suspect]
     Indication: OSTEOPENIA
     Route: 048
     Dates: start: 20021113, end: 20051122
  3. DIAZEPAM [Concomitant]
     Route: 065
  4. ZOLOFT [Concomitant]
     Route: 065
  5. RANITIDINE [Concomitant]
     Route: 065

REACTIONS (21)
  - ANXIETY [None]
  - ARTHROPATHY [None]
  - BLOOD GROWTH HORMONE DECREASED [None]
  - CHOLESTEROL GRANULOMA [None]
  - CHRONIC OBSTRUCTIVE PULMONARY DISEASE [None]
  - CONTUSION [None]
  - GASTROOESOPHAGEAL REFLUX DISEASE [None]
  - HYPERSENSITIVITY [None]
  - HYPERTENSION [None]
  - INFLAMMATION [None]
  - INSOMNIA [None]
  - JAW CYST [None]
  - KETOACIDOSIS [None]
  - NERVE INJURY [None]
  - ORAL TORUS [None]
  - OSTEONECROSIS [None]
  - PLEURAL EFFUSION [None]
  - RHINITIS ALLERGIC [None]
  - SUNBURN [None]
  - SYNCOPE [None]
  - SYNCOPE VASOVAGAL [None]
